FAERS Safety Report 7355438-X (Version None)
Quarter: 2011Q1

REPORT INFORMATION
  Report Type: 
  Country: None (occurrence: None)
  Receive Date: 20110316
  Receipt Date: 20110302
  Transmission Date: 20110831
  Serious: Yes (Other)
  Sender: FDA-Public Use
  Company Number: JP-ELI_LILLY_AND_COMPANY-JP201012004254

PATIENT
  Age: 60 Year
  Sex: Female

DRUGS (2)
  1. CISPLATIN [Concomitant]
     Indication: LUNG ADENOCARCINOMA STAGE IV
  2. ALIMTA [Suspect]
     Indication: LUNG ADENOCARCINOMA STAGE IV
     Route: 042

REACTIONS (1)
  - POSTERIOR REVERSIBLE ENCEPHALOPATHY SYNDROME [None]
